FAERS Safety Report 12530493 (Version 1)
Quarter: 2016Q3

REPORT INFORMATION
  Report Type: Report from Study
  Country: GB (occurrence: GB)
  Receive Date: 20160706
  Receipt Date: 20160706
  Transmission Date: 20161109
  Serious: Yes (Hospitalization, Other)
  Sender: FDA-Public Use
  Company Number: GB-BIOGEN-2016BI00260662

PATIENT
  Age: 35 Year
  Sex: Female

DRUGS (2)
  1. TYSABRI [Suspect]
     Active Substance: NATALIZUMAB
     Indication: RELAPSING-REMITTING MULTIPLE SCLEROSIS
     Route: 042
     Dates: start: 20110807, end: 20150106
  2. LITHIUM. [Concomitant]
     Active Substance: LITHIUM
     Indication: BIPOLAR DISORDER
     Route: 065
     Dates: start: 20150102

REACTIONS (2)
  - Psychotic disorder [Unknown]
  - Bipolar disorder [Recovered/Resolved with Sequelae]

NARRATIVE: CASE EVENT DATE: 20150601
